FAERS Safety Report 14529809 (Version 1)
Quarter: 2018Q1

REPORT INFORMATION
  Report Type: Spontaneous
  Country: DE (occurrence: DE)
  Receive Date: 20180214
  Receipt Date: 20180214
  Transmission Date: 20180509
  Serious: Yes (Other)
  Sender: FDA-Public Use
  Company Number: DE-WEST-WARD PHARMACEUTICALS CORP.-DE-H14001-18-01065

PATIENT
  Age: 83 Year
  Sex: Female
  Weight: 65 kg

DRUGS (15)
  1. ROCURONIUM [Suspect]
     Active Substance: ROCURONIUM BROMIDE
     Indication: PRODUCT USED FOR UNKNOWN INDICATION
     Dosage: ()
     Route: 065
  2. AKRINOR [Suspect]
     Active Substance: CAFEDRINE HYDROCHLORIDE\THEODRENALINE
     Dosage: 2 ML SOLUTION FOR INJECTION CONTAINS 200 MG CAFEDRINHYDROCHLORID AND 10 MG THEODRENALINHYDROCHLORID
     Route: 042
     Dates: start: 20170216, end: 20170216
  3. PANTOZOL [Concomitant]
     Active Substance: PANTOPRAZOLE SODIUM
     Indication: PROPHYLAXIS
     Dosage: 40 MILLIGRAM DAILY; ()
     Route: 048
  4. DEXAMETHASONE. [Suspect]
     Active Substance: DEXAMETHASONE
     Indication: PRODUCT USED FOR UNKNOWN INDICATION
     Dosage: ()
     Route: 065
  5. REMIFENTANIL [Suspect]
     Active Substance: REMIFENTANIL
     Indication: PRODUCT USED FOR UNKNOWN INDICATION
     Dosage: ()
     Route: 065
  6. AKRINOR [Suspect]
     Active Substance: CAFEDRINE HYDROCHLORIDE\THEODRENALINE
     Indication: PROCEDURAL HYPOTENSION
     Dosage: 2 ML SOLUTION FOR INJECTION CONTAINS 200 MG CAFEDRINHYDROCHLORID AND 10 MG THEODRENALINHYDROCHLORID
     Route: 042
     Dates: start: 20170216, end: 20170216
  7. BROMAZEPAM [Concomitant]
     Active Substance: BROMAZEPAM
     Indication: DEPRESSION
     Dosage: 6 MILLIGRAM DAILY; ()
     Route: 048
  8. CANDESARTAN. [Concomitant]
     Active Substance: CANDESARTAN
     Indication: HYPERTENSION
     Dosage: 16 MILLIGRAM DAILY; ()
     Route: 048
  9. MIRTAZAPIN [Concomitant]
     Active Substance: MIRTAZAPINE
     Indication: DEPRESSION
     Dosage: 30 MILLIGRAM DAILY; ()
     Route: 048
  10. METOPROLOL. [Concomitant]
     Active Substance: METOPROLOL
     Indication: HYPERTENSION
     Dosage: 95 MILLIGRAM DAILY; ()
     Route: 048
  11. BUPRENORPHINE. [Concomitant]
     Active Substance: BUPRENORPHINE
     Indication: ANALGESIC THERAPY
     Dosage: 240 MICROGRAM DAILY; ()
     Route: 062
  12. AMITRIPTYLIN [Concomitant]
     Active Substance: AMITRIPTYLINE
     Indication: DEPRESSION
     Dosage: 12.5 MILLIGRAM DAILY; ()
     Route: 048
  13. ACETYLSALICYLIC ACID [Concomitant]
     Active Substance: ASPIRIN
     Indication: PRODUCT USED FOR UNKNOWN INDICATION
     Dosage: 100 MILLIGRAM DAILY; ()
     Route: 048
  14. CEFAZOLIN [Suspect]
     Active Substance: CEFAZOLIN
     Indication: PRODUCT USED FOR UNKNOWN INDICATION
     Dosage: ()
     Route: 065
  15. PROPOFOL. [Suspect]
     Active Substance: PROPOFOL
     Indication: PRODUCT USED FOR UNKNOWN INDICATION
     Dosage: ()
     Route: 065

REACTIONS (2)
  - Hypertension [Recovered/Resolved]
  - Bradycardia [Recovered/Resolved]

NARRATIVE: CASE EVENT DATE: 20170216
